FAERS Safety Report 7031125-2 (Version None)
Quarter: 2010Q4

REPORT INFORMATION
  Report Type: 
  Country: None (occurrence: None)
  Receive Date: 20101006
  Receipt Date: 20100929
  Transmission Date: 20110411
  Serious: Yes (Other)
  Sender: FDA-Public Use
  Company Number: CA-ELI_LILLY_AND_COMPANY-CA201009008249

PATIENT
  Sex: Male

DRUGS (4)
  1. CIALIS [Suspect]
     Dosage: 20 MG, UNK
  2. CIALIS [Suspect]
     Dosage: 5 MG, UNK
  3. LEVEMIR [Concomitant]
     Indication: DIABETES MELLITUS
  4. NOVO RAPID [Concomitant]
     Indication: DIABETES MELLITUS

REACTIONS (2)
  - PROSTATECTOMY [None]
  - THERAPEUTIC RESPONSE DECREASED [None]
